FAERS Safety Report 8626045-3 (Version None)
Quarter: 2012Q3

REPORT INFORMATION
  Report Type: 
  Country: None (occurrence: None)
  Receive Date: 20120827
  Receipt Date: 20120814
  Transmission Date: 20120928
  Serious: Yes (Other)
  Sender: FDA-Public Use
  Company Number: IT-FRI-1000038157

PATIENT
  Age: 62 Year
  Sex: Female

DRUGS (2)
  1. ESCITALOPRAM OXALATE [Suspect]
     Route: 048
  2. PRAZEPAM [Concomitant]

REACTIONS (4)
  - BALANCE DISORDER [None]
  - CIRCULATORY COLLAPSE [None]
  - VISION BLURRED [None]
  - NAUSEA [None]
